FAERS Safety Report 9927269 (Version 1)
Quarter: 2014Q1

REPORT INFORMATION
  Report Type: Spontaneous
  Country: US (occurrence: US)
  Receive Date: 20140226
  Receipt Date: 20140226
  Transmission Date: 20141002
  Serious: Yes (Hospitalization, Other)
  Sender: FDA-Public Use
  Company Number: US-RB-063822-14

PATIENT
  Sex: Female

DRUGS (2)
  1. SUBUTEX [Suspect]
     Indication: DRUG DEPENDENCE
     Route: 060
     Dates: start: 2011
  2. NICOTINE [Concomitant]
     Indication: NICOTINE DEPENDENCE
     Dosage: THE PATIENT WAS SMOKING 5 CIGARETTES DAILY
     Route: 055

REACTIONS (3)
  - Maternal exposure during pregnancy [Recovered/Resolved]
  - Placenta praevia [Recovered/Resolved]
  - Premature delivery [Recovered/Resolved]
